FAERS Safety Report 24686311 (Version 1)
Quarter: 2024Q4

REPORT INFORMATION
  Report Type: Spontaneous
  Country: DE (occurrence: DE)
  Receive Date: 20241202
  Receipt Date: 20241202
  Transmission Date: 20250114
  Serious: Yes (Other)
  Sender: MYLAN
  Company Number: DE-MYLANLABS-2024M1106186

PATIENT
  Age: 25 Year
  Sex: Male

DRUGS (9)
  1. MYCOPHENOLATE MOFETIL [Suspect]
     Active Substance: MYCOPHENOLATE MOFETIL
     Indication: Prophylaxis
     Dosage: UNK
     Route: 065
  2. CYCLOSPORINE [Suspect]
     Active Substance: CYCLOSPORINE
     Indication: Prophylaxis
     Dosage: UNK
     Route: 065
  3. FINGOLIMOD [Suspect]
     Active Substance: FINGOLIMOD
     Indication: Viraemia
     Dosage: UNK
     Route: 065
  4. THYMOCYTE IMMUNE GLOBULIN NOS [Suspect]
     Active Substance: THYMOCYTE IMMUNE GLOBULIN NOS
     Indication: Prophylaxis
     Dosage: UNK
     Route: 065
  5. BELUMOSUDIL [Suspect]
     Active Substance: BELUMOSUDIL
     Indication: Encephalitis
     Dosage: UNK
     Route: 065
  6. AXATILIMAB [Suspect]
     Active Substance: AXATILIMAB
     Indication: Encephalitis
     Dosage: 0.3 MILLIGRAM/KILOGRAM, Q2W, EVERY 2ND WEEK
     Route: 065
  7. METHYLPREDNISOLONE [Suspect]
     Active Substance: METHYLPREDNISOLONE
     Indication: Acute graft versus host disease in eye
     Dosage: UNK
     Route: 065
  8. METHYLPREDNISOLONE [Suspect]
     Active Substance: METHYLPREDNISOLONE
     Indication: Encephalitis
  9. METHYLPREDNISOLONE [Suspect]
     Active Substance: METHYLPREDNISOLONE
     Indication: Acute graft versus host disease in liver

REACTIONS (6)
  - Rebound effect [Unknown]
  - Retrograde amnesia [Unknown]
  - Seizure [Unknown]
  - Disorientation [Unknown]
  - Drug ineffective [Unknown]
  - Off label use [Unknown]
